FAERS Safety Report 25705876 (Version 1)
Quarter: 2025Q3

REPORT INFORMATION
  Report Type: Report from Study
  Country: US (occurrence: US)
  Receive Date: 20250820
  Receipt Date: 20250820
  Transmission Date: 20251021
  Serious: Yes (Hospitalization)
  Sender: BIOCODEX
  Company Number: US-BIOCODEX2-2025001183

PATIENT
  Age: 6 Year
  Sex: Male
  Weight: 15.9 kg

DRUGS (16)
  1. DIACOMIT [Suspect]
     Active Substance: STIRIPENTOL
     Indication: Epilepsy
     Dosage: DAYS 1-7: TAKE 125MG (5ML FROM 250MG POWDER DISSOLVED IN 10ML OF WATER) TWICE DAILY
     Route: 050
     Dates: start: 20250718
  2. DIACOMIT [Suspect]
     Active Substance: STIRIPENTOL
     Indication: Epilepsy
     Dosage: DAYS 8-14: TAKE 125MG IN THE MORNING AND 250MM IN THE EVENING IN SEPARATE DOSES EACH DAY
     Route: 050
     Dates: start: 20250718
  3. DIACOMIT [Suspect]
     Active Substance: STIRIPENTOL
     Indication: Epilepsy
     Dosage: DAYS 15 AND THEREAFTER: TAKE 250MG (DISSOLVED IN 10ML OF WATER) TWICE DAILY
     Route: 050
     Dates: start: 20250718
  4. CLOBAZAM [Concomitant]
     Active Substance: CLOBAZAM
     Indication: Product used for unknown indication
     Route: 065
  5. DIAZEPAM [Concomitant]
     Active Substance: DIAZEPAM
     Indication: Product used for unknown indication
     Route: 065
  6. erythromycin (systemic) [Concomitant]
     Indication: Product used for unknown indication
     Route: 065
  7. FLEQSUVY [Concomitant]
     Active Substance: BACLOFEN
     Indication: Product used for unknown indication
     Route: 065
  8. GABAPENTIN [Concomitant]
     Active Substance: GABAPENTIN
     Indication: Product used for unknown indication
     Route: 065
  9. KEPPRA [Concomitant]
     Active Substance: LEVETIRACETAM
     Indication: Product used for unknown indication
     Route: 065
  10. MELATONIN [Concomitant]
     Active Substance: MELATONIN
     Indication: Product used for unknown indication
     Route: 065
  11. MOTRIN  IB [Concomitant]
     Indication: Product used for unknown indication
     Route: 065
  12. OMEPRAZOLE [Concomitant]
     Active Substance: OMEPRAZOLE
     Indication: Product used for unknown indication
     Route: 065
  13. PHENOBARBITAL [Concomitant]
     Active Substance: PHENOBARBITAL
     Indication: Product used for unknown indication
     Route: 065
  14. TYLENOL [Concomitant]
     Active Substance: ACETAMINOPHEN
     Indication: Product used for unknown indication
     Route: 065
  15. VITAMIN D3 [Concomitant]
     Active Substance: CHOLECALCIFEROL
     Indication: Product used for unknown indication
     Route: 065
  16. ZYRTEC (systemic) [Concomitant]
     Indication: Product used for unknown indication
     Route: 065

REACTIONS (5)
  - Hospitalisation [Recovered/Resolved]
  - Emergency care [Unknown]
  - Product preparation issue [Unknown]
  - Off label use [Unknown]
  - Off label use [Unknown]

NARRATIVE: CASE EVENT DATE: 20250718
